FAERS Safety Report 5262583-1 (Version None)
Quarter: 2007Q1

REPORT INFORMATION
  Report Type: 
  Country: None (occurrence: None)
  Receive Date: 20070312
  Receipt Date: 20070227
  Transmission Date: 20070707
  Serious: Yes (Hospitalization, Disabling, Other)
  Sender: FDA-Public Use
  Company Number: PHFR2007GB00805

PATIENT
  Age: 32 Year
  Sex: Male
  Weight: 83 kg

DRUGS (8)
  1. CLOZARIL [Suspect]
     Indication: SCHIZOPHRENIA
     Dosage: 50 MG, BID
     Route: 048
     Dates: start: 20070102, end: 20070109
  2. CLOZARIL [Suspect]
     Dosage: 25 MG, BID
     Route: 048
  3. DEPAKOTE [Concomitant]
     Indication: SCHIZOAFFECTIVE DISORDER
     Dosage: 1G/UNK
     Route: 048
  4. DIAMORPHINE [Concomitant]
     Indication: SCHIZOAFFECTIVE DISORDER
     Dosage: 20MG/UNK
     Route: 048
  5. DIAZEPAM [Concomitant]
     Indication: AGITATION
     Dosage: 15 MG, QID
     Route: 048
  6. DIAZEPAM [Concomitant]
     Dosage: 10 MG, QID
     Route: 048
     Dates: start: 20061214
  7. PROMETHAZINE [Concomitant]
     Indication: AGITATION
     Dosage: 50 MG, TID
     Route: 048
     Dates: start: 20061214
  8. VALPROATE SODIUM [Concomitant]
     Dosage: 1 G, BID
     Route: 048
     Dates: start: 20050101

REACTIONS (13)
  - BLOOD CALCIUM DECREASED [None]
  - BLOOD PRESSURE INCREASED [None]
  - BLOOD UREA DECREASED [None]
  - BODY TEMPERATURE INCREASED [None]
  - C-REACTIVE PROTEIN INCREASED [None]
  - DYSPNOEA [None]
  - ELECTROCARDIOGRAM ABNORMAL [None]
  - HAEMOGLOBIN DECREASED [None]
  - NEUTROPHIL COUNT INCREASED [None]
  - PITTING OEDEMA [None]
  - TACHYCARDIA [None]
  - VENTRICULAR HYPERTROPHY [None]
  - WHITE BLOOD CELL COUNT INCREASED [None]
